FAERS Safety Report 12871425 (Version 1)
Quarter: 2016Q4

REPORT INFORMATION
  Report Type: Spontaneous
  Country: TR (occurrence: TR)
  Receive Date: 20161020
  Receipt Date: 20161020
  Transmission Date: 20170207
  Serious: Yes (Other)
  Sender: FDA-Public Use
  Company Number: PHHY2016TR143010

PATIENT
  Age: 24 Year
  Sex: Male

DRUGS (6)
  1. CICLOSPORIN [Suspect]
     Active Substance: CYCLOSPORINE
     Indication: BEHCET^S SYNDROME
     Route: 065
  2. INTERFERON ALFA NOS [Concomitant]
     Active Substance: INTERFERON ALFA-2A OR INTERFERON ALFA-2B
     Indication: BEHCET^S SYNDROME
     Dosage: UNK
     Route: 065
  3. ACZ885 [Suspect]
     Active Substance: CANAKINUMAB
     Indication: BEHCET^S SYNDROME
     Route: 065
  4. CICLOSPORIN [Suspect]
     Active Substance: CYCLOSPORINE
     Indication: IMMUNOSUPPRESSANT DRUG THERAPY
  5. METHOTREXATE. [Suspect]
     Active Substance: METHOTREXATE
     Indication: BEHCET^S SYNDROME
     Route: 065
  6. METHOTREXATE. [Suspect]
     Active Substance: METHOTREXATE
     Indication: IMMUNOSUPPRESSANT DRUG THERAPY

REACTIONS (5)
  - Pyrexia [Unknown]
  - Loss of consciousness [Unknown]
  - Headache [Unknown]
  - Meningitis tuberculous [Recovered/Resolved]
  - Product use issue [Unknown]
